FAERS Safety Report 6981656-6 (Version None)
Quarter: 2010Q3

REPORT INFORMATION
  Report Type: 
  Country: None (occurrence: None)
  Receive Date: 20100914
  Receipt Date: 20090915
  Transmission Date: 20110219
  Serious: No
  Sender: FDA-Public Use
  Company Number: US-PFIZER INC-2009270975

PATIENT
  Sex: Female
  Weight: 72.11 kg

DRUGS (8)
  1. LYRICA [Suspect]
     Indication: NEUROPATHY PERIPHERAL
     Dosage: 50 MG, 1X/DAY
     Dates: start: 20090101
  2. WELLBUTRIN [Concomitant]
     Dosage: UNK
  3. CLONAZEPAM [Concomitant]
     Dosage: UNK
  4. ACCUPRIL [Concomitant]
     Dosage: UNK
  5. PRAVASTATIN [Concomitant]
     Dosage: UNK
  6. HYDROCHLOROTHIAZIDE [Concomitant]
     Dosage: UNK
  7. PULMICORT [Concomitant]
     Dosage: UNK
     Route: 055
  8. PREDNISONE [Concomitant]
     Dosage: 20 MG, UNK

REACTIONS (3)
  - DIZZINESS [None]
  - HYPERHIDROSIS [None]
  - VISION BLURRED [None]
